FAERS Safety Report 11216495 (Version 2)
Quarter: 2015Q3

REPORT INFORMATION
  Report Type: Spontaneous
  Country: US (occurrence: US)
  Receive Date: 20150624
  Receipt Date: 20150806
  Transmission Date: 20151125
  Serious: No
  Sender: FDA-Public Use
  Company Number: US-GLAXOSMITHKLINE-US2015087335

PATIENT
  Age: 46 Year
  Sex: Female

DRUGS (1)
  1. ALLI [Suspect]
     Active Substance: ORLISTAT
     Indication: WEIGHT DECREASED
     Dosage: UNK

REACTIONS (5)
  - Abnormal faeces [Unknown]
  - Change of bowel habit [Unknown]
  - Weight increased [Unknown]
  - Gastrointestinal disorder [Unknown]
  - Treatment noncompliance [Unknown]
